FAERS Safety Report 9058774 (Version 3)
Quarter: 2014Q1

REPORT INFORMATION
  Report Type: Report from Study
  Country: IT (occurrence: IT)
  Receive Date: 20130204
  Receipt Date: 20140115
  Transmission Date: 20141002
  Serious: Yes (Death, Life-Threatening, Hospitalization, Disabling)
  Sender: FDA-Public Use
  Company Number: PHHO2013IT001867

PATIENT
  Sex: 0

DRUGS (3)
  1. AMN107 [Suspect]
     Indication: CHRONIC MYELOID LEUKAEMIA
     Dosage: 400 MG, DAILY
     Route: 048
     Dates: start: 20070705
  2. CARDIOASPIRIN [Concomitant]
     Indication: ANGIOPATHY
     Dosage: 100 MG, UNK
     Route: 048
  3. NITRODERM [Concomitant]
     Indication: ANGIOPATHY
     Dosage: 10 G, UNK
     Route: 048
     Dates: start: 20120116

REACTIONS (2)
  - Cardiac failure congestive [Fatal]
  - Acute myocardial infarction [Recovered/Resolved with Sequelae]
